FAERS Safety Report 15942845 (Version 1)
Quarter: 2019Q1

REPORT INFORMATION
  Report Type: Spontaneous
  Country: NL (occurrence: NL)
  Receive Date: 20190210
  Receipt Date: 20190210
  Transmission Date: 20190417
  Serious: Yes (Hospitalization)
  Sender: FDA-Public Use
  Company Number: PHHY2019NL027146

PATIENT
  Sex: Male
  Weight: 3 kg

DRUGS (1)
  1. CLOMIPRAMINE HYDROCHLORIDE. [Suspect]
     Active Substance: CLOMIPRAMINE HYDROCHLORIDE
     Indication: FOETAL EXPOSURE DURING PREGNANCY
     Dosage: MATERNAL DOSE: 225 MG, QD
     Route: 064

REACTIONS (1)
  - Hypertonia neonatal [Recovering/Resolving]

NARRATIVE: CASE EVENT DATE: 20190110
